FAERS Safety Report 24462165 (Version 1)
Quarter: 2024Q4

REPORT INFORMATION
  Report Type: Spontaneous
  Country: US (occurrence: US)
  Receive Date: 20241018
  Receipt Date: 20241018
  Transmission Date: 20250115
  Serious: No
  Sender: UCB
  Company Number: US-UCBSA-2024039272

PATIENT
  Sex: Female
  Weight: 84.807 kg

DRUGS (1)
  1. BIMZELX [Suspect]
     Active Substance: BIMEKIZUMAB-BKZX
     Indication: Psoriasis
     Dosage: 320 MILLIGRAM, AT WEEKS 0, 4, 8, 12, AND 16, THEN EVERY 8 WEEKS THEREAFTER FOR MAINTENANCE
     Route: 058

REACTIONS (2)
  - Pain [Unknown]
  - Product dose omission issue [Unknown]
